FAERS Safety Report 18549127 (Version 1)
Quarter: 2020Q4

REPORT INFORMATION
  Report Type: Spontaneous
  Country: FR (occurrence: FR)
  Receive Date: 20201126
  Receipt Date: 20201126
  Transmission Date: 20210114
  Serious: Yes (Hospitalization)
  Sender: FDA-Public Use
  Company Number: FR-TEVA-2020-FR-1851921

PATIENT
  Age: 66 Year
  Sex: Male
  Weight: 62.5 kg

DRUGS (10)
  1. CARBOPLATINE [Suspect]
     Active Substance: CARBOPLATIN
     Indication: TRANSITIONAL CELL CANCER OF RENAL PELVIS AND URETER METASTATIC
     Dosage: UNSPECIFIED
     Route: 042
     Dates: start: 202006
  2. KARDEGIC [Concomitant]
     Active Substance: ASPIRIN DL-LYSINE
     Dosage: 1 DF, SACHET-DOSE
     Route: 048
  3. COUMADINE [Concomitant]
     Active Substance: WARFARIN SODIUM
     Indication: THROMBOSIS
     Dosage: UNSPECIFIED
     Dates: start: 202005, end: 202006
  4. ACIDE FOLIQUE [Concomitant]
     Active Substance: FOLIC ACID
     Dosage: 5 MG
     Route: 048
  5. GRANOCYTE [Concomitant]
     Active Substance: LENOGRASTIM
     Indication: CHEMOTHERAPY SIDE EFFECT PROPHYLAXIS
     Dates: start: 20200702, end: 20200702
  6. GEMCITABINE. [Suspect]
     Active Substance: GEMCITABINE
     Indication: TRANSITIONAL CELL CANCER OF RENAL PELVIS AND URETER METASTATIC
     Dosage: UNSPECIFIED
     Route: 042
     Dates: start: 202006
  7. OROCAL 500 MG, COMPRIME [Concomitant]
     Dosage: 1 DF
     Route: 048
  8. PANTOPRAZOLE [Concomitant]
     Active Substance: PANTOPRAZOLE
     Dosage: 40 MG
     Route: 048
  9. VENLAFAXINE [Concomitant]
     Active Substance: VENLAFAXINE HYDROCHLORIDE
     Route: 048
  10. PREVISCAN [Concomitant]
     Indication: THROMBOSIS
     Dosage: UNSPECIFIED
     Route: 048
     Dates: start: 202006, end: 20200705

REACTIONS (1)
  - Pancytopenia [Recovered/Resolved]

NARRATIVE: CASE EVENT DATE: 20200706
